FAERS Safety Report 11417005 (Version 3)
Quarter: 2015Q4

REPORT INFORMATION
  Report Type: Spontaneous
  Country: US (occurrence: US)
  Receive Date: 20150825
  Receipt Date: 20151020
  Transmission Date: 20160304
  Serious: Yes (Other)
  Sender: FDA-Public Use
  Company Number: US-BAYER-2015-407146

PATIENT
  Age: 31 Year
  Sex: Female

DRUGS (1)
  1. MIRENA [Suspect]
     Active Substance: LEVONORGESTREL
     Dosage: 20 MCG/24HR, CONT
     Route: 015
     Dates: start: 20120524, end: 20140331

REACTIONS (13)
  - Fear [None]
  - Injury [Not Recovered/Not Resolved]
  - Device difficult to use [None]
  - Uterine perforation [Not Recovered/Not Resolved]
  - Pain [Not Recovered/Not Resolved]
  - Anxiety [None]
  - Genital haemorrhage [None]
  - Emotional distress [None]
  - Post procedural haemorrhage [None]
  - Anhedonia [None]
  - Laparotomy [None]
  - Procedural haemorrhage [None]
  - Medical device discomfort [Not Recovered/Not Resolved]

NARRATIVE: CASE EVENT DATE: 2014
